FAERS Safety Report 4343221-9 (Version None)
Quarter: 2004Q1

REPORT INFORMATION
  Report Type: 
  Country: None (occurrence: None)
  Receive Date: 20040325
  Receipt Date: 20040123
  Transmission Date: 20041129
  Serious: No
  Sender: FDA-Public Use
  Company Number: USA030844588

PATIENT
  Age: 81 Year
  Sex: Female
  Weight: 41 kg

DRUGS (5)
  1. FORTEO [Suspect]
     Indication: OSTEOPOROSIS
     Dates: start: 20030418
  2. ATENOLOL [Concomitant]
  3. LOTENSIN [Concomitant]
  4. ACETYLSALICYLIC ACID SRT [Concomitant]
  5. PRAVACHOL [Concomitant]

REACTIONS (3)
  - ARTHRALGIA [None]
  - INJECTION SITE HAEMORRHAGE [None]
  - PAIN IN EXTREMITY [None]
